FAERS Safety Report 9952797 (Version 2)
Quarter: 2014Q1

REPORT INFORMATION
  Report Type: Spontaneous
  Country: US (occurrence: US)
  Receive Date: 20140304
  Receipt Date: 20140304
  Transmission Date: 20141002
  Serious: No
  Sender: FDA-Public Use
  Company Number: US-B.I. PHARMACEUTICALS,INC./RIDGEFIELD-2013-BI-24606BP

PATIENT
  Age: 65 Year
  Sex: Male
  Weight: 33 kg

DRUGS (5)
  1. COMBIVENT [Suspect]
     Indication: CHRONIC OBSTRUCTIVE PULMONARY DISEASE
     Dosage: STRENGTH: 20MCG/100MCG; DAILY DOSE: 80MCG/400MCG
     Route: 055
     Dates: start: 2013, end: 2013
  2. SYMBICORT [Concomitant]
     Dosage: 4 PUF
     Route: 055
  3. VERAPAMIL [Concomitant]
     Route: 065
  4. TRIAMTERENE/HCTZ [Concomitant]
     Indication: HYPERTENSION
     Dosage: STRENGTH: 75/50
     Route: 065
  5. LOVASTATIN [Concomitant]
     Indication: BLOOD CHOLESTEROL INCREASED
     Route: 065

REACTIONS (2)
  - Dyspnoea [Not Recovered/Not Resolved]
  - Drug ineffective [Recovered/Resolved]
